FAERS Safety Report 13312609 (Version 1)
Quarter: 2017Q1

REPORT INFORMATION
  Report Type: Spontaneous
  Country: FR (occurrence: FR)
  Receive Date: 20170309
  Receipt Date: 20170309
  Transmission Date: 20170428
  Serious: Yes (Death)
  Sender: FDA-Public Use
  Company Number: FR-PFIZER INC-2017096110

PATIENT
  Age: 30 Year
  Sex: Female

DRUGS (15)
  1. CARBOPLATINE HOSPIRA [Suspect]
     Active Substance: CARBOPLATIN
     Dosage: 800 MG, UNK
     Route: 041
     Dates: start: 20151229, end: 20151229
  2. PACLITAXEL. [Concomitant]
     Active Substance: PACLITAXEL
     Dosage: 350 MG, UNK
     Route: 041
     Dates: start: 20151208, end: 20151208
  3. AVASTIN [Concomitant]
     Active Substance: BEVACIZUMAB
     Dosage: 1335 MG, CYCLIC
     Route: 041
     Dates: start: 20151117, end: 20151117
  4. CARBOPLATINE HOSPIRA [Suspect]
     Active Substance: CARBOPLATIN
     Indication: METASTASES TO PERITONEUM
     Dosage: 698 MG, CYCLIC
     Route: 041
     Dates: start: 20151117, end: 20151117
  5. CARBOPLATINE HOSPIRA [Suspect]
     Active Substance: CARBOPLATIN
     Dosage: 752 MG, UNK
     Route: 041
     Dates: start: 20160212, end: 20160212
  6. PACLITAXEL. [Concomitant]
     Active Substance: PACLITAXEL
     Dosage: 350 MG, UNK
     Route: 041
     Dates: start: 20160119, end: 20160119
  7. PACLITAXEL. [Concomitant]
     Active Substance: PACLITAXEL
     Dosage: 350 MG, UNK
     Route: 041
     Dates: start: 20160212, end: 20160212
  8. AVASTIN [Concomitant]
     Active Substance: BEVACIZUMAB
     Dosage: 1365 MG, UNK
     Route: 041
     Dates: start: 20151208, end: 20151208
  9. CARBOPLATINE HOSPIRA [Suspect]
     Active Substance: CARBOPLATIN
     Dosage: 777 MG, UNK
     Route: 041
     Dates: start: 20151208, end: 20151208
  10. CARBOPLATINE HOSPIRA [Suspect]
     Active Substance: CARBOPLATIN
     Dosage: 800 MG, UNK
     Route: 041
     Dates: start: 20160119, end: 20160119
  11. CARBOPLATINE HOSPIRA [Suspect]
     Active Substance: CARBOPLATIN
     Dosage: 670 MG, UNK
     Route: 041
     Dates: start: 20160531, end: 20160531
  12. AVASTIN [Concomitant]
     Active Substance: BEVACIZUMAB
     Dosage: 1365 MG, UNK
     Route: 041
     Dates: start: 20151229, end: 20151229
  13. PACLITAXEL. [Concomitant]
     Active Substance: PACLITAXEL
     Dosage: 350 MG, UNK
     Route: 041
     Dates: start: 20151229, end: 20151229
  14. PACLITAXEL. [Concomitant]
     Active Substance: PACLITAXEL
     Dosage: 350 MG, CYCLIC
     Route: 041
     Dates: start: 20151117, end: 20151117
  15. AVASTIN [Concomitant]
     Active Substance: BEVACIZUMAB
     Dosage: 1380 MG, UNK
     Route: 041
     Dates: start: 20160119, end: 20160119

REACTIONS (1)
  - Septic shock [Fatal]

NARRATIVE: CASE EVENT DATE: 20160617
